FAERS Safety Report 10402030 (Version 1)
Quarter: 2014Q3

REPORT INFORMATION
  Report Type: Spontaneous
  Country: US (occurrence: None)
  Receive Date: 20140820
  Receipt Date: 20140820
  Transmission Date: 20150326
  Serious: Yes (Hospitalization)
  Sender: FDA-Public Use
  Company Number: IPC201408-000410

PATIENT
  Age: 50 Year
  Sex: Female

DRUGS (4)
  1. MEROPENEM. [Concomitant]
     Active Substance: MEROPENEM
  2. ALLOPURINOL (ALLOPURINOL) (ALLOPURINOL) [Suspect]
     Active Substance: ALLOPURINOL
     Indication: NEUTROPENIC SEPSIS
  3. ALLOPURINOL (ALLOPURINOL) (ALLOPURINOL) [Suspect]
     Active Substance: ALLOPURINOL
     Indication: ACUTE MYELOID LEUKAEMIA
  4. VANCOMYCIN [Concomitant]
     Active Substance: VANCOMYCIN

REACTIONS (1)
  - Acute generalised exanthematous pustulosis [None]
